FAERS Safety Report 6731404-X (Version None)
Quarter: 2010Q2

REPORT INFORMATION
  Report Type: 
  Country: None (occurrence: None)
  Receive Date: 20100518
  Receipt Date: 20100518
  Transmission Date: 20101027
  Serious: Yes (Hospitalization)
  Sender: FDA-Public Use
  Company Number: None

PATIENT
  Age: 80 Year
  Sex: Male
  Weight: 85.2 kg

DRUGS (1)
  1. PACLITAXEL [Suspect]
     Indication: LUNG NEOPLASM MALIGNANT
     Dosage: 100 MG OTHER IV
     Route: 042
     Dates: start: 20100312, end: 20100326

REACTIONS (5)
  - FEELING ABNORMAL [None]
  - FLUSHING [None]
  - HYPOXIA [None]
  - SYNCOPE [None]
  - UNRESPONSIVE TO STIMULI [None]
